FAERS Safety Report 9756626 (Version 1)
Quarter: 2013Q4

REPORT INFORMATION
  Report Type: Spontaneous
  Country: CA (occurrence: CA)
  Receive Date: 20131213
  Receipt Date: 20131213
  Transmission Date: 20140711
  Serious: Yes (Other)
  Sender: FDA-Public Use
  Company Number: CA-PFIZER INC-2013356001

PATIENT
  Age: 58 Year
  Sex: Male

DRUGS (10)
  1. ENBREL [Suspect]
     Dosage: UNK UNK, QWK
     Route: 058
  2. CELEBREX [Suspect]
     Dosage: UNK
  3. METHOTREXATE SODIUM [Suspect]
     Dosage: UNK
     Route: 013
  4. REMICADE [Suspect]
     Dosage: UNK
     Route: 042
  5. ARAVA [Suspect]
     Dosage: UNK
  6. GOLD [Suspect]
     Dosage: UNK
  7. HUMIRA [Suspect]
     Dosage: UNK
     Route: 058
  8. NAPROXEN SODIUM [Suspect]
     Dosage: UNK
  9. PLAQUENIL [Suspect]
     Dosage: UNK
  10. PREDNISONE [Suspect]
     Dosage: 5 MG, UNK

REACTIONS (2)
  - Infection [Recovered/Resolved]
  - Pneumonia [Recovered/Resolved]
